FAERS Safety Report 12070899 (Version 2)
Quarter: 2016Q1

REPORT INFORMATION
  Report Type: Spontaneous
  Country: IT (occurrence: IT)
  Receive Date: 20160211
  Receipt Date: 20160229
  Transmission Date: 20160526
  Serious: Yes (Other)
  Sender: FDA-Public Use
  Company Number: PHHY2016IT016523

PATIENT
  Age: 31 Year
  Sex: Male

DRUGS (2)
  1. ZIMOX [Suspect]
     Active Substance: AMOXICILLIN
     Indication: INFLUENZA
     Dosage: 2 G, QD
     Route: 048
     Dates: start: 20160101, end: 20160109
  2. ACETYLSALICYLIC ACID [Suspect]
     Active Substance: ASPIRIN
     Indication: INFLUENZA
     Route: 048
     Dates: start: 20160101, end: 20160109

REACTIONS (1)
  - Urticaria [Recovering/Resolving]

NARRATIVE: CASE EVENT DATE: 20160106
